FAERS Safety Report 14120312 (Version 1)
Quarter: 2017Q4

REPORT INFORMATION
  Report Type: Spontaneous
  Country: AT (occurrence: AT)
  Receive Date: 20171024
  Receipt Date: 20171024
  Transmission Date: 20180321
  Serious: Yes (Hospitalization)
  Sender: FDA-Public Use
  Company Number: PHHY2017AT153978

PATIENT
  Age: 67 Year
  Sex: Female

DRUGS (35)
  1. SEROQUEL [Suspect]
     Active Substance: QUETIAPINE FUMARATE
     Indication: PRODUCT USED FOR UNKNOWN INDICATION
     Dosage: 400 MG, UNK
     Route: 065
     Dates: start: 20170614, end: 20170616
  2. PRAXITEN [Concomitant]
     Active Substance: OXAZEPAM
     Dosage: 100 MG
     Route: 065
     Dates: start: 20170621, end: 20170626
  3. PRAXITEN [Concomitant]
     Active Substance: OXAZEPAM
     Dosage: 50 MG
     Route: 065
     Dates: start: 20170626, end: 20170630
  4. GLUCOPHAGE [Concomitant]
     Active Substance: METFORMIN HYDROCHLORIDE
     Indication: PRODUCT USED FOR UNKNOWN INDICATION
     Dosage: 500 MG
     Route: 065
     Dates: start: 20170614, end: 20170703
  5. ABILIFY [Concomitant]
     Active Substance: ARIPIPRAZOLE
     Indication: PRODUCT USED FOR UNKNOWN INDICATION
     Dosage: 5 MG
     Route: 065
     Dates: start: 20170725, end: 20170726
  6. AKINETON [Suspect]
     Active Substance: BIPERIDEN HYDROCHLORIDE
     Dosage: 4 MG
     Route: 065
     Dates: start: 20170703, end: 20170707
  7. PRAXITEN [Concomitant]
     Active Substance: OXAZEPAM
     Dosage: 97.5 MG
     Route: 065
     Dates: start: 20170617, end: 20170617
  8. RISPERDAL [Concomitant]
     Active Substance: RISPERIDONE
     Indication: PRODUCT USED FOR UNKNOWN INDICATION
     Dosage: 1 MG
     Route: 065
     Dates: start: 20170626, end: 20170629
  9. RISPERDAL [Concomitant]
     Active Substance: RISPERIDONE
     Dosage: 1.5 MG
     Route: 065
     Dates: start: 20170705, end: 20170705
  10. SELEXID (PEVMECILLINAM HYDROCHLORIDE) [Concomitant]
     Active Substance: AMDINOCILLIN PIVOXIL HYDROCHLORIDE
     Indication: PRODUCT USED FOR UNKNOWN INDICATION
     Dosage: 400 MG
     Route: 065
     Dates: start: 20170627, end: 20170630
  11. SEROQUEL [Suspect]
     Active Substance: QUETIAPINE FUMARATE
     Dosage: 175 MG
     Route: 065
     Dates: start: 20170620, end: 20170620
  12. PRAXITEN [Concomitant]
     Active Substance: OXAZEPAM
     Dosage: 40 MG
     Route: 065
     Dates: start: 20170619, end: 20170620
  13. RISPERDAL [Concomitant]
     Active Substance: RISPERIDONE
     Dosage: 1 MG
     Route: 065
     Dates: start: 20170706, end: 20170706
  14. PRAXITEN [Concomitant]
     Active Substance: OXAZEPAM
     Indication: PRODUCT USED FOR UNKNOWN INDICATION
     Dosage: 130 MG
     Route: 065
     Dates: start: 20170614, end: 20170616
  15. PRAXITEN [Concomitant]
     Active Substance: OXAZEPAM
     Dosage: 75 MG
     Route: 065
     Dates: start: 20170705, end: 20170706
  16. NACL [Concomitant]
     Active Substance: SODIUM CHLORIDE
     Indication: PRODUCT USED FOR UNKNOWN INDICATION
     Dosage: 2 DF, UNK
     Route: 065
     Dates: start: 20170614, end: 20170620
  17. LAEVOLAC [Concomitant]
     Active Substance: LACTULOSE
     Indication: PRODUCT USED FOR UNKNOWN INDICATION
     Dosage: 2EL
     Route: 065
     Dates: start: 20170723
  18. ABILIFY [Concomitant]
     Active Substance: ARIPIPRAZOLE
     Dosage: 10 MG
     Route: 065
     Dates: start: 20170727
  19. SERTRALINE [Suspect]
     Active Substance: SERTRALINE HYDROCHLORIDE
     Indication: PRODUCT USED FOR UNKNOWN INDICATION
     Dosage: 100 MG, UNK
     Route: 065
     Dates: start: 20170614, end: 20170619
  20. LEPONEX / CLOZARIL (CLOZAPINE) [Suspect]
     Active Substance: CLOZAPINE
     Dosage: 350 MG
     Route: 065
     Dates: start: 20170620, end: 20170620
  21. PRAXITEN [Concomitant]
     Active Substance: OXAZEPAM
     Dosage: 90 MG
     Route: 065
     Dates: start: 20170618, end: 20170618
  22. RISPERDAL [Concomitant]
     Active Substance: RISPERIDONE
     Dosage: 3 MG
     Route: 065
     Dates: start: 20170630, end: 20170630
  23. RISPERDAL [Concomitant]
     Active Substance: RISPERIDONE
     Dosage: 4 MG
     Route: 065
     Dates: start: 20170701, end: 20170702
  24. AMANTADINE SULFATE [Concomitant]
     Active Substance: AMANTADINE SULFATE
     Indication: PRODUCT USED FOR UNKNOWN INDICATION
     Dosage: 200 MG
     Route: 065
     Dates: start: 20170708, end: 20170719
  25. SEROQUEL [Suspect]
     Active Substance: QUETIAPINE FUMARATE
     Dosage: 250 MG
     Route: 065
     Dates: start: 20170619, end: 20170619
  26. CALCIUM GLYCEROPHOSPHATE\CELLULOSE\POLYETHYLENE GLYCOL\SACCHARIN SODIUM\SODIUM HYDROXIDE\SODIUM LAURYL SULFATE\SODIUM MAGNESIUM SILICATE\SODIUM MONOFLUOROPHOSPHATE\SORBITOL\WATER [Concomitant]
     Active Substance: CALCIUM GLYCEROPHOSPHATE\POLYETHYLENE GLYCOLS\POWDERED CELLULOSE\SACCHARIN SODIUM DIHYDRATE\SODIUM HYDROXIDE\SODIUM LAURYL SULFATE\SODIUM MAGNESIUM SILICATE\SODIUM MONOFLUOROPHOSPHATE\SORBITOL\WATER
     Indication: PRODUCT USED FOR UNKNOWN INDICATION
     Dosage: 1 DF
     Route: 065
     Dates: start: 20170614, end: 20170707
  27. LOVENOX [Concomitant]
     Active Substance: ENOXAPARIN SODIUM
     Indication: PRODUCT USED FOR UNKNOWN INDICATION
     Dosage: 40 MG, UNK
     Route: 065
     Dates: start: 20170621, end: 20170729
  28. RISPERDAL [Concomitant]
     Active Substance: RISPERIDONE
     Dosage: 2 MG
     Route: 065
     Dates: start: 20170703, end: 20170704
  29. TEMESTA (LORAZEPAM) [Concomitant]
     Active Substance: LORAZEPAM
     Dosage: 2.5 MG
     Route: 065
     Dates: start: 20170720
  30. SEROQUEL [Suspect]
     Active Substance: QUETIAPINE FUMARATE
     Dosage: 300 MG
     Route: 065
     Dates: start: 20170617, end: 20170618
  31. AKINETON [Suspect]
     Active Substance: BIPERIDEN HYDROCHLORIDE
     Indication: PRODUCT USED FOR UNKNOWN INDICATION
     Dosage: 4 MG
     Route: 065
     Dates: start: 20170614, end: 20170622
  32. LEPONEX / CLOZARIL (CLOZAPINE) [Suspect]
     Active Substance: CLOZAPINE
     Indication: PRODUCT USED FOR UNKNOWN INDICATION
     Dosage: 400 MG, UNK
     Route: 065
     Dates: start: 20170614, end: 20170619
  33. PRAXITEN [Concomitant]
     Active Substance: OXAZEPAM
     Dosage: 150 MG
     Route: 065
     Dates: start: 20170701, end: 20170704
  34. PANTOLOC [Concomitant]
     Active Substance: PANTOPRAZOLE SODIUM
     Indication: PRODUCT USED FOR UNKNOWN INDICATION
     Dosage: 40 MG
     Route: 065
     Dates: start: 20170614, end: 20170707
  35. TEMESTA (LORAZEPAM) [Concomitant]
     Active Substance: LORAZEPAM
     Indication: PRODUCT USED FOR UNKNOWN INDICATION
     Dosage: 3 MG
     Route: 065
     Dates: start: 20170707, end: 20170719

REACTIONS (1)
  - Delirium [Recovered/Resolved]

NARRATIVE: CASE EVENT DATE: 20170619
